FAERS Safety Report 23321186 (Version 2)
Quarter: 2024Q1

REPORT INFORMATION
  Report Type: Spontaneous
  Country: BE (occurrence: BE)
  Receive Date: 20231220
  Receipt Date: 20240103
  Transmission Date: 20240409
  Serious: Yes (Hospitalization)
  Sender: FDA-Public Use
  Company Number: BE-SAMSUNG BIOEPIS-SB-2023-33484

PATIENT
  Age: 31 Year
  Sex: Male

DRUGS (2)
  1. ADALIMUMAB [Suspect]
     Active Substance: ADALIMUMAB\ISOPROPYL ALCOHOL
     Indication: Crohn^s disease
     Dosage: UNKNOWN
     Route: 065
  2. AZATHIOPRINE [Concomitant]
     Active Substance: AZATHIOPRINE
     Indication: Crohn^s disease
     Dosage: UNKNOWN
     Route: 065

REACTIONS (3)
  - Hypersensitivity pneumonitis [Recovering/Resolving]
  - Crohn^s disease [Unknown]
  - Exposure to fungus [Unknown]
